FAERS Safety Report 9922126 (Version 3)
Quarter: 2014Q1

REPORT INFORMATION
  Report Type: Report from Study
  Country: BR (occurrence: BR)
  Receive Date: 20140225
  Receipt Date: 20140325
  Transmission Date: 20141002
  Serious: Yes (Other)
  Sender: FDA-Public Use
  Company Number: PHHY2013BR153327

PATIENT
  Age: 46 Year
  Sex: Female
  Weight: 70 kg

DRUGS (6)
  1. GILENYA [Suspect]
     Indication: MULTIPLE SCLEROSIS
     Dosage: 0.5 MG, QD
     Route: 048
     Dates: start: 201202
  2. GILENYA [Suspect]
     Dosage: 0.5 MG, QD
     Route: 048
     Dates: start: 2013, end: 20131223
  3. GILENYA [Suspect]
     Dosage: 1 DF, QD
     Route: 048
     Dates: start: 20140212
  4. FAMPRIDINE [Concomitant]
  5. SERTRALINE [Concomitant]
     Indication: DEPRESSION
     Dosage: 2 DF, DAILY
     Route: 048
  6. BACLOFEN [Concomitant]
     Indication: MUSCLE RELAXANT THERAPY
     Dosage: 2 DF, DAILY
     Route: 048

REACTIONS (16)
  - Convulsion [Recovering/Resolving]
  - Malaise [Recovering/Resolving]
  - Oral discomfort [Recovering/Resolving]
  - Oral mucosal discolouration [Recovering/Resolving]
  - Dyspnoea [Recovering/Resolving]
  - Chest pain [Recovering/Resolving]
  - Urinary incontinence [Recovered/Resolved]
  - Visual impairment [Unknown]
  - Hearing impaired [Unknown]
  - Syncope [Recovered/Resolved]
  - Sensory loss [Unknown]
  - Dysstasia [Unknown]
  - Stress [Recovering/Resolving]
  - Blood pressure decreased [Recovered/Resolved]
  - Dizziness [Recovering/Resolving]
  - Drug administration error [Unknown]
